FAERS Safety Report 9494751 (Version 1)
Quarter: 2013Q3

REPORT INFORMATION
  Report Type: Spontaneous
  Country: US (occurrence: US)
  Receive Date: 20130903
  Receipt Date: 20130903
  Transmission Date: 20140515
  Serious: No
  Sender: FDA-Public Use
  Company Number: US-PFIZER INC-2013249682

PATIENT
  Age: 72 Year
  Sex: Female
  Weight: 80.73 kg

DRUGS (2)
  1. PROTONIX [Suspect]
     Indication: INFLAMMATION
     Dosage: 40 MG, 2X/DAY
     Dates: start: 2013
  2. HYDROXYCHLOROQUINE [Concomitant]
     Indication: SYSTEMIC LUPUS ERYTHEMATOSUS
     Dosage: 200 MG, 2X/DAY

REACTIONS (2)
  - Malaise [Not Recovered/Not Resolved]
  - Rash [Not Recovered/Not Resolved]
